FAERS Safety Report 14422851 (Version 1)
Quarter: 2018Q1

REPORT INFORMATION
  Report Type: Report from Study
  Country: FR (occurrence: FR)
  Receive Date: 20180123
  Receipt Date: 20180123
  Transmission Date: 20180509
  Serious: Yes (Other)
  Sender: FDA-Public Use
  Company Number: FR-ROCHE-2058414

PATIENT
  Age: 46 Year
  Sex: Male
  Weight: 92 kg

DRUGS (11)
  1. VISMODEGIB. [Suspect]
     Active Substance: VISMODEGIB
     Route: 065
     Dates: start: 20120811
  2. VISMODEGIB. [Suspect]
     Active Substance: VISMODEGIB
     Route: 065
     Dates: start: 20131113
  3. VISMODEGIB. [Suspect]
     Active Substance: VISMODEGIB
     Indication: CHONDROSARCOMA
     Route: 065
     Dates: start: 20110303
  4. VISMODEGIB. [Suspect]
     Active Substance: VISMODEGIB
     Route: 065
     Dates: start: 20111021
  5. VISMODEGIB. [Suspect]
     Active Substance: VISMODEGIB
     Route: 065
     Dates: start: 20110625
  6. VISMODEGIB. [Suspect]
     Active Substance: VISMODEGIB
     Route: 065
     Dates: start: 20130720
  7. VISMODEGIB. [Suspect]
     Active Substance: VISMODEGIB
     Route: 065
     Dates: start: 20110920
  8. VISMODEGIB. [Suspect]
     Active Substance: VISMODEGIB
     Route: 065
     Dates: start: 20110401
  9. VISMODEGIB. [Suspect]
     Active Substance: VISMODEGIB
     Route: 065
     Dates: start: 20120713
  10. VISMODEGIB. [Suspect]
     Active Substance: VISMODEGIB
     Route: 065
     Dates: start: 20121006
  11. VISMODEGIB. [Suspect]
     Active Substance: VISMODEGIB
     Route: 065
     Dates: start: 20120908

REACTIONS (1)
  - Hyperkalaemia [Unknown]
